FAERS Safety Report 15813548 (Version 1)
Quarter: 2019Q1

REPORT INFORMATION
  Report Type: Spontaneous
  Country: ES (occurrence: ES)
  Receive Date: 20190111
  Receipt Date: 20190111
  Transmission Date: 20190417
  Serious: Yes (Death, Other)
  Sender: FDA-Public Use
  Company Number: ES-BAYER-2019-008609

PATIENT
  Age: 74 Year
  Sex: Female
  Weight: 50 kg

DRUGS (8)
  1. NEXAVAR [Suspect]
     Active Substance: SORAFENIB
     Indication: HEPATIC CANCER
     Dosage: 800 MG
     Dates: start: 20101007
  2. CALCIUM [Concomitant]
     Active Substance: CALCIUM
     Indication: OSTEOPOROSIS
  3. VITAMIN B [Concomitant]
     Active Substance: VITAMIN B
  4. NEXAVAR [Suspect]
     Active Substance: SORAFENIB
     Indication: HEPATIC CANCER
     Dosage: 400 MG
  5. FENTANYL. [Concomitant]
     Active Substance: FENTANYL
     Dosage: UNK
     Dates: start: 201112
  6. MEGESTROL [Concomitant]
     Active Substance: MEGESTROL
  7. VITAMIN D [Concomitant]
     Active Substance: CHOLECALCIFEROL
     Indication: OSTEOPOROSIS
  8. LOPERAMIDA [LOPERAMIDE] [Concomitant]

REACTIONS (22)
  - Myalgia [None]
  - Pelvic venous thrombosis [None]
  - Pain of skin [None]
  - Ascites [None]
  - Alopecia [None]
  - Abdominal pain upper [None]
  - Weight decreased [None]
  - Lymphadenopathy [None]
  - Diarrhoea [None]
  - Muscle spasms [None]
  - Asthenia [None]
  - Skin fragility [None]
  - Sciatica [None]
  - Abdominal pain upper [None]
  - Metastases to lung [None]
  - Arthralgia [None]
  - Decreased appetite [None]
  - Epigastric discomfort [None]
  - Dry skin [None]
  - Aphthous ulcer [None]
  - Skin erosion [None]
  - Lymphadenopathy [None]

NARRATIVE: CASE EVENT DATE: 20101017
